FAERS Safety Report 18947991 (Version 3)
Quarter: 2021Q1

REPORT INFORMATION
  Report Type: Spontaneous
  Country: FR (occurrence: FR)
  Receive Date: 20210226
  Receipt Date: 20210315
  Transmission Date: 20210420
  Serious: Yes (Other)
  Sender: FDA-Public Use
  Company Number: FR-ORGANON-2102FRA002131

PATIENT
  Age: 28 Year
  Sex: Female
  Weight: 49.5 kg

DRUGS (2)
  1. NEXPLANON [Suspect]
     Active Substance: ETONOGESTREL
     Indication: CONTRACEPTION
     Dosage: 1 IMPLANT IN LEFT ARM, ON THE TRICEPS
     Dates: start: 20210108
  2. NEXPLANON [Suspect]
     Active Substance: ETONOGESTREL
     Indication: CONTRACEPTION
     Dosage: 1 IMPLANT IN LEFT ARM,
     Route: 059
     Dates: end: 20210108

REACTIONS (4)
  - Complication of device removal [Recovered/Resolved]
  - Venous thrombosis limb [Unknown]
  - Device placement issue [Not Recovered/Not Resolved]
  - Venous injury [Unknown]

NARRATIVE: CASE EVENT DATE: 2021
